FAERS Safety Report 23559086 (Version 1)
Quarter: 2024Q1

REPORT INFORMATION
  Report Type: Spontaneous
  Country: US (occurrence: US)
  Receive Date: 20240223
  Receipt Date: 20240223
  Transmission Date: 20240409
  Serious: No
  Sender: FDA-Public Use
  Company Number: US-PFIZER INC-PV202300206575

PATIENT
  Age: 71 Year
  Sex: Female
  Weight: 61.7 kg

DRUGS (3)
  1. XALKORI [Suspect]
     Active Substance: CRIZOTINIB
     Indication: Squamous cell carcinoma of lung
     Dosage: TAKE 1 CAPSULE BY MOUTH TWICE DAILY
     Route: 048
  2. XALKORI [Suspect]
     Active Substance: CRIZOTINIB
     Indication: Neoplasm malignant
  3. XALKORI [Suspect]
     Active Substance: CRIZOTINIB
     Indication: Lung squamous cell carcinoma stage IV

REACTIONS (3)
  - Weight decreased [Unknown]
  - Illness [Unknown]
  - Off label use [Unknown]
